FAERS Safety Report 17708380 (Version 1)
Quarter: 2020Q2

REPORT INFORMATION
  Report Type: Report from Study
  Country: DE (occurrence: DE)
  Receive Date: 20200426
  Receipt Date: 20200426
  Transmission Date: 20200714
  Serious: Yes (Other)
  Sender: FDA-Public Use
  Company Number: NVSC2020DE112223

PATIENT
  Sex: Female
  Weight: 54 kg

DRUGS (7)
  1. COSENTYX [Suspect]
     Active Substance: SECUKINUMAB
     Dosage: 150 MG, QW
     Route: 065
     Dates: start: 20200327, end: 20200327
  2. DICLAC [Concomitant]
     Active Substance: DICLOFENAC
     Indication: PSORIATIC ARTHROPATHY
     Dosage: 50 MG, BID
     Route: 048
     Dates: start: 20191113
  3. COSENTYX [Suspect]
     Active Substance: SECUKINUMAB
     Indication: PSORIATIC ARTHROPATHY
     Dosage: 150 MG, QW
     Route: 065
     Dates: start: 20200306, end: 20200306
  4. COSENTYX [Suspect]
     Active Substance: SECUKINUMAB
     Dosage: 150 MG, QD
     Route: 065
     Dates: start: 20200403, end: 20200403
  5. COSENTYX [Suspect]
     Active Substance: SECUKINUMAB
     Dosage: 150 MG, QW
     Route: 065
     Dates: start: 20200320, end: 20200320
  6. COSENTYX [Suspect]
     Active Substance: SECUKINUMAB
     Dosage: 150 MG, QW
     Route: 065
     Dates: start: 20200313, end: 20200313
  7. PREDNISOLONE. [Concomitant]
     Active Substance: PREDNISOLONE
     Indication: PSORIATIC ARTHROPATHY
     Dosage: 5 MG, QD
     Route: 048
     Dates: start: 20191113

REACTIONS (1)
  - Psoriatic arthropathy [Not Recovered/Not Resolved]

NARRATIVE: CASE EVENT DATE: 20200415
